FAERS Safety Report 5955821-0 (Version None)
Quarter: 2008Q4

REPORT INFORMATION
  Report Type: 
  Country: None (occurrence: None)
  Receive Date: 20081117
  Receipt Date: 20081105
  Transmission Date: 20090506
  Serious: Yes (Hospitalization)
  Sender: FDA-Public Use
  Company Number: GR-PFIZER INC-2008093971

PATIENT
  Age: 29 Year
  Sex: Male

DRUGS (4)
  1. MEDROL [Suspect]
     Indication: SARCOIDOSIS
     Dates: start: 20080101, end: 20080101
  2. ACETAMINOPHEN [Suspect]
     Indication: PAIN IN EXTREMITY
     Dates: start: 20080101
  3. DEPON [Suspect]
     Indication: PAIN IN EXTREMITY
     Dates: start: 20080101
  4. ALL OTHER THERAPEUTIC PRODUCTS [Concomitant]

REACTIONS (4)
  - DIARRHOEA [None]
  - TRANSAMINASES INCREASED [None]
  - VERTIGO [None]
  - VOMITING [None]
